FAERS Safety Report 7186811-0 (Version None)
Quarter: 2010Q4

REPORT INFORMATION
  Report Type: 
  Country: None (occurrence: None)
  Receive Date: 20101222
  Receipt Date: 20101220
  Transmission Date: 20110411
  Serious: Yes (Other)
  Sender: FDA-Public Use
  Company Number: A0900763A

PATIENT
  Age: 14 Year
  Sex: Female

DRUGS (1)
  1. ADVAIR [Suspect]
     Indication: ASTHMA
     Dates: start: 20101001

REACTIONS (3)
  - APHASIA [None]
  - ASTHMA [None]
  - SUFFOCATION FEELING [None]
